FAERS Safety Report 8171873-4 (Version None)
Quarter: 2012Q1

REPORT INFORMATION
  Report Type: 
  Country: None (occurrence: None)
  Receive Date: 20120228
  Receipt Date: 20120223
  Transmission Date: 20120608
  Serious: Yes (Other)
  Sender: FDA-Public Use
  Company Number: FR-ROXANE LABORATORIES, INC.-2012-RO-00711RO

PATIENT
  Age: 85 Year

DRUGS (2)
  1. SUPERPOTENT TOPICAL STEROID [Concomitant]
     Indication: PEMPHIGOID
     Route: 061
  2. METHOTREXATE [Suspect]
     Indication: PEMPHIGOID

REACTIONS (1)
  - CYTOLYTIC HEPATITIS [None]
